FAERS Safety Report 12810905 (Version 1)
Quarter: 2016Q4

REPORT INFORMATION
  Report Type: Spontaneous
  Country: US (occurrence: US)
  Receive Date: 20161004
  Receipt Date: 20161004
  Transmission Date: 20170207
  Serious: Yes (Disabling)
  Sender: FDA-Public Use
  Company Number: None

PATIENT
  Age: 57 Year
  Sex: Female
  Weight: 63 kg

DRUGS (8)
  1. LEVOFLOXACIN 500MG [Suspect]
     Active Substance: LEVOFLOXACIN
     Indication: BURSITIS INFECTIVE
     Dosage: ?          QUANTITY:5 TABLET(S);?
     Route: 048
     Dates: start: 20160927, end: 20160929
  2. PENECILLIN [Concomitant]
  3. BACTRIM [Concomitant]
     Active Substance: SULFAMETHOXAZOLE\TRIMETHOPRIM
  4. MAGNESIUM [Concomitant]
     Active Substance: MAGNESIUM
  5. DULOXITENE [Concomitant]
  6. AMOXICILLIN. [Concomitant]
     Active Substance: AMOXICILLIN
  7. ATIVAN [Concomitant]
     Active Substance: LORAZEPAM
  8. VITAMIN D3 [Concomitant]
     Active Substance: CHOLECALCIFEROL

REACTIONS (6)
  - Arthralgia [None]
  - Muscular weakness [None]
  - Visual impairment [None]
  - Ocular discomfort [None]
  - Discomfort [None]
  - Vision blurred [None]

NARRATIVE: CASE EVENT DATE: 20160928
